FAERS Safety Report 8313068-7 (Version None)
Quarter: 2012Q2

REPORT INFORMATION
  Report Type: 
  Country: None (occurrence: None)
  Receive Date: 20120426
  Receipt Date: 20120423
  Transmission Date: 20120825
  Serious: Yes (Other)
  Sender: FDA-Public Use
  Company Number: US-PFIZER INC-2012099813

PATIENT
  Sex: Female
  Weight: 74.376 kg

DRUGS (3)
  1. TOVIAZ [Suspect]
     Indication: HYPERTONIC BLADDER
     Dosage: 4 MG, DAILY
     Route: 048
     Dates: start: 20120412, end: 20120419
  2. LIPITOR [Concomitant]
     Indication: BLOOD CHOLESTEROL INCREASED
     Dosage: 20 MG, UNK
  3. ESTRACE [Concomitant]
     Dosage: 2 G, WEEKLY
     Route: 067

REACTIONS (2)
  - ANORECTAL DISORDER [None]
  - PROCTALGIA [None]
